FAERS Safety Report 8646023 (Version 9)
Quarter: 2013Q3

REPORT INFORMATION
  Report Type: Spontaneous
  Country: US (occurrence: US)
  Receive Date: 20120702
  Receipt Date: 20130710
  Transmission Date: 20140515
  Serious: Yes (Hospitalization, Disabling, Other)
  Sender: FDA-Public Use
  Company Number: US-009507513-1206USA04691

PATIENT
  Sex: Female
  Weight: 49.89 kg

DRUGS (9)
  1. FOSAMAX [Suspect]
     Indication: OSTEOPOROSIS
     Dosage: 70 MG, QW
     Route: 048
     Dates: start: 20011202
  2. FOSAMAX [Suspect]
     Indication: OSTEOPENIA
     Dosage: 70 MG, QM
     Route: 048
  3. FOSAMAX [Suspect]
     Indication: OSTEOPOROSIS
     Dosage: 70 MG, UNK
     Route: 048
     Dates: start: 20080328
  4. FOSAMAX [Suspect]
     Indication: OSTEOPENIA
  5. INHALED CORTICOSTEROID (UNSPECIFIED) [Concomitant]
     Indication: ASTHMA
     Dosage: UNK
     Dates: start: 19870101
  6. HORMONES (UNSPECIFIED) [Concomitant]
  7. AZMACORT [Concomitant]
     Indication: ASTHMA
     Dosage: UNK
     Dates: start: 19870101
  8. SEREVENT [Concomitant]
     Indication: ASTHMA
     Dosage: UNK
     Dates: start: 19870101
  9. CALCIUM (UNSPECIFIED) [Concomitant]
     Dosage: UNK

REACTIONS (66)
  - Open reduction of fracture [Unknown]
  - Osteoporosis [Unknown]
  - Rib fracture [Unknown]
  - Tonsillectomy [Unknown]
  - Stress fracture [Unknown]
  - Anaemia postoperative [Unknown]
  - Femur fracture [Unknown]
  - Low turnover osteopathy [Unknown]
  - Scapula fracture [Unknown]
  - Femur fracture [Unknown]
  - Spinal fusion acquired [Unknown]
  - Tooth extraction [Unknown]
  - Dental implantation [Unknown]
  - Inappropriate schedule of drug administration [Unknown]
  - Underdose [Unknown]
  - Drug administration error [Unknown]
  - Scoliosis [Unknown]
  - Bursitis [Unknown]
  - Fall [Unknown]
  - Foot deformity [Unknown]
  - Muscle tightness [Unknown]
  - Limb asymmetry [Unknown]
  - Intervertebral disc degeneration [Unknown]
  - Radiculitis [Unknown]
  - Haemangioma [Unknown]
  - Synovial cyst [Unknown]
  - Intervertebral disc protrusion [Unknown]
  - Osteoarthritis [Unknown]
  - Tooth disorder [Unknown]
  - Oral surgery [Unknown]
  - Upper limb fracture [Unknown]
  - Hiatus hernia [Unknown]
  - Foot fracture [Unknown]
  - Gingival disorder [Unknown]
  - Hypotension [Unknown]
  - Tooth extraction [Unknown]
  - Hyponatraemia [Unknown]
  - Tooth disorder [Unknown]
  - Blood glucose increased [Unknown]
  - Irritable bowel syndrome [Unknown]
  - Dental fistula [Unknown]
  - Arthritis [Unknown]
  - Excoriation [Unknown]
  - Insomnia [Unknown]
  - Post lumbar puncture syndrome [Recovered/Resolved]
  - Foot fracture [Unknown]
  - Foot fracture [Unknown]
  - Meniscus injury [Unknown]
  - Knee operation [Unknown]
  - Hepatic cirrhosis [Unknown]
  - Spinal deformity [Unknown]
  - Spinal osteoarthritis [Unknown]
  - Intervertebral disc annular tear [Unknown]
  - Arteriosclerosis [Unknown]
  - Lumbar spinal stenosis [Unknown]
  - Constipation [Unknown]
  - Joint swelling [Unknown]
  - Arthralgia [Unknown]
  - Nausea [Unknown]
  - Erythema [Unknown]
  - Muscle spasms [Unknown]
  - Back pain [Unknown]
  - Vomiting [Unknown]
  - Bone pain [Unknown]
  - Musculoskeletal discomfort [Unknown]
  - Drug ineffective [Unknown]
